FAERS Safety Report 5838926-4 (Version None)
Quarter: 2008Q3

REPORT INFORMATION
  Report Type: 
  Country: None (occurrence: None)
  Receive Date: 20080808
  Receipt Date: 20080801
  Transmission Date: 20090109
  Serious: Yes (Hospitalization)
  Sender: FDA-Public Use
  Company Number: PHHY2008CN16401

PATIENT

DRUGS (2)
  1. SEBIVO [Suspect]
     Indication: HEPATITIS B
     Dosage: UNK
     Route: 048
  2. INTERFERON [Concomitant]
     Indication: HEPATITIS B
     Dosage: UNK

REACTIONS (3)
  - BLOOD CREATINE PHOSPHOKINASE INCREASED [None]
  - BLOOD CREATINE PHOSPHOKINASE MB INCREASED [None]
  - MYOCARDITIS [None]
